APPROVED DRUG PRODUCT: PIOGLITAZONE HYDROCHLORIDE
Active Ingredient: PIOGLITAZONE HYDROCHLORIDE
Strength: EQ 30MG BASE
Dosage Form/Route: TABLET;ORAL
Application: A076801 | Product #002
Applicant: PHARMOBEDIENT CONSULTING LLC
Approved: Aug 17, 2012 | RLD: No | RS: No | Type: DISCN